FAERS Safety Report 8286784-3 (Version None)
Quarter: 2012Q2

REPORT INFORMATION
  Report Type: 
  Country: None (occurrence: None)
  Receive Date: 20120416
  Receipt Date: 20120409
  Transmission Date: 20120825
  Serious: Yes (Death)
  Sender: FDA-Public Use
  Company Number: US-SANOFI-AVENTIS-2012SA025020

PATIENT
  Age: 65 Year
  Sex: Male

DRUGS (3)
  1. ACETYLSALICYLIC ACID SRT [Suspect]
     Route: 065
  2. ATENOLOL AND CHLORTHALIDONE [Suspect]
     Route: 065
  3. ACETYLSALICYLIC ACID SRT [Suspect]
     Route: 065

REACTIONS (3)
  - HYPOTENSION [None]
  - HAEMATEMESIS [None]
  - OESOPHAGEAL VARICES HAEMORRHAGE [None]
